FAERS Safety Report 24449726 (Version 1)
Quarter: 2024Q4

REPORT INFORMATION
  Report Type: Spontaneous
  Country: US (occurrence: US)
  Receive Date: 20241017
  Receipt Date: 20241017
  Transmission Date: 20250115
  Serious: Yes (Hospitalization, Other)
  Sender: APOTEX
  Company Number: US-APOTEX-2024AP011942

PATIENT
  Age: 48 Year
  Sex: Male

DRUGS (6)
  1. ACYCLOVIR [Suspect]
     Active Substance: ACYCLOVIR
     Indication: HIV infection
     Dosage: 400 MILLIGRAM, 5 TIMES PER DAY
     Route: 065
  2. ACYCLOVIR [Suspect]
     Active Substance: ACYCLOVIR
     Indication: Acquired immunodeficiency syndrome
  3. VALACYCLOVIR [Concomitant]
     Active Substance: VALACYCLOVIR HYDROCHLORIDE
     Indication: HIV infection
     Dosage: 1 GRAM, TID
     Route: 065
  4. VALACYCLOVIR [Concomitant]
     Active Substance: VALACYCLOVIR HYDROCHLORIDE
     Indication: Acquired immunodeficiency syndrome
  5. METHYLPREDNISOLONE [Concomitant]
     Active Substance: METHYLPREDNISOLONE
     Indication: HIV infection
     Dosage: UNK
     Route: 065
  6. METHYLPREDNISOLONE [Concomitant]
     Active Substance: METHYLPREDNISOLONE
     Indication: Acquired immunodeficiency syndrome

REACTIONS (5)
  - Disseminated herpes simplex [Recovered/Resolved]
  - Drug resistance [Recovered/Resolved]
  - Oral herpes [Recovered/Resolved]
  - Herpes simplex [Recovered/Resolved]
  - Genital herpes [Recovered/Resolved]
